FAERS Safety Report 15394307 (Version 1)
Quarter: 2018Q3

REPORT INFORMATION
  Report Type: Report from Study
  Country: US (occurrence: US)
  Receive Date: 20180918
  Receipt Date: 20180918
  Transmission Date: 20181010
  Serious: Yes (Other)
  Sender: FDA-Public Use
  Company Number: US-ROCHE-2158637

PATIENT
  Age: 57 Year
  Sex: Male

DRUGS (2)
  1. OCREVUS [Suspect]
     Active Substance: OCRELIZUMAB
     Dosage: SECOND INFUSION
     Route: 065
     Dates: start: 20180226
  2. OCREVUS [Suspect]
     Active Substance: OCRELIZUMAB
     Indication: MULTIPLE SCLEROSIS
     Dosage: SECOND INFUSION
     Route: 065
     Dates: start: 20180212

REACTIONS (3)
  - Nausea [Recovered/Resolved]
  - Immunodeficiency [Unknown]
  - Viral infection [Unknown]

NARRATIVE: CASE EVENT DATE: 20180212
